FAERS Safety Report 18643735 (Version 1)
Quarter: 2020Q4

REPORT INFORMATION
  Report Type: Spontaneous
  Country: US (occurrence: US)
  Receive Date: 20201221
  Receipt Date: 20201221
  Transmission Date: 20210114
  Serious: Yes (Hospitalization)
  Sender: FDA-Public Use
  Company Number: None

PATIENT
  Age: 36 Year
  Sex: Male
  Weight: 74.8 kg

DRUGS (1)
  1. ISOVUE 300 [Suspect]
     Active Substance: IOPAMIDOL
     Indication: HAEMANGIOPERICYTOMA
     Dosage: ?          OTHER FREQUENCY:ONCE FOR CONTRAST;?
     Route: 042
     Dates: start: 20201218

REACTIONS (1)
  - Urticaria [None]

NARRATIVE: CASE EVENT DATE: 20201218
